FAERS Safety Report 10308288 (Version 1)
Quarter: 2014Q2

REPORT INFORMATION
  Report Type: Report from Study
  Country: GB (occurrence: None)
  Receive Date: 20140625
  Receipt Date: 20140625
  Transmission Date: 20141212
  Serious: No
  Sender: FDA-Public Use
  Company Number: BTG00128

PATIENT
  Age: 85 Year
  Sex: Female
  Weight: 70 kg

DRUGS (16)
  1. DIGIFAB [Suspect]
     Indication: TOXICITY TO VARIOUS AGENTS
     Dosage: 3 VIALS
     Dates: start: 20140526
  2. DIGOXIN (DIGOXIN) [Concomitant]
  3. BISOPROLOL (BISOPROLOL FUMARATE) [Concomitant]
  4. BUMETANIDE (BUMETANIDE) [Concomitant]
  5. CODEINE (CODEINE) [Concomitant]
  6. DIPROBASE (CETOMACROGOL, CETOSTEARYL ALCOHOL, PARAFFIN, LIQUID, WHITE SOFT PARAFFIN) [Concomitant]
  7. GABAPENTIN (GABAPENTIN) [Concomitant]
  8. LANSOPRAZOLE (LANSOPRAZOLE) [Concomitant]
  9. ORAMORPH (MORPHINE SULFATE PENTAHYDRATE) [Concomitant]
  10. PARACETAMOL (PARACETAMOL) [Concomitant]
  11. SENNA (SENNA) [Concomitant]
  12. WARFARIN (WARFARIN SODIUM) [Concomitant]
  13. SALBUTAMOL (SALBUTAMOL) [Concomitant]
  14. SPIRONOLACTONE (SPIRONOLACTONE) [Concomitant]
  15. SERETIDE (FLUTICASONE PROPIONATE, SALMETEROL XINAFOATE) [Concomitant]
  16. TIOTROPIUM (TIOTROPIUM) [Concomitant]

REACTIONS (1)
  - Drug ineffective [None]
